APPROVED DRUG PRODUCT: PREGABALIN
Active Ingredient: PREGABALIN
Strength: 25MG
Dosage Form/Route: CAPSULE;ORAL
Application: A210432 | Product #001 | TE Code: AB
Applicant: RISING PHARMA HOLDINGS INC
Approved: Jul 19, 2019 | RLD: No | RS: No | Type: RX